FAERS Safety Report 10570181 (Version 1)
Quarter: 2014Q4

REPORT INFORMATION
  Report Type: Spontaneous
  Country: FR (occurrence: FR)
  Receive Date: 20141107
  Receipt Date: 20141107
  Transmission Date: 20150529
  Serious: Yes (Death)
  Sender: FDA-Public Use
  Company Number: FR-ROCHE-1485689

PATIENT
  Age: 37 Year
  Sex: Female

DRUGS (6)
  1. CORTANCYL [Suspect]
     Active Substance: PREDNISONE
     Indication: PRODUCT USED FOR UNKNOWN INDICATION
     Dosage: 40MG QD THEN 20MG QD
     Route: 048
     Dates: start: 201409, end: 201410
  2. LOPERAMIDE [Concomitant]
     Active Substance: LOPERAMIDE
  3. AVASTIN [Suspect]
     Active Substance: BEVACIZUMAB
     Indication: BREAST CANCER METASTATIC
     Route: 042
     Dates: start: 201311, end: 20140909
  4. FRAXODI [Concomitant]
     Active Substance: NADROPARIN CALCIUM
     Route: 065
  5. FASLODEX [Suspect]
     Active Substance: FULVESTRANT
     Indication: BREAST CANCER METASTATIC
     Route: 030
     Dates: start: 201402, end: 20141009
  6. TAXOL [Concomitant]
     Active Substance: PACLITAXEL
     Route: 065
     Dates: start: 201311, end: 201402

REACTIONS (2)
  - Necrotising fasciitis [Fatal]
  - Anal abscess [Fatal]

NARRATIVE: CASE EVENT DATE: 20141015
